FAERS Safety Report 16681187 (Version 1)
Quarter: 2019Q3

REPORT INFORMATION
  Report Type: Spontaneous
  Country: GB (occurrence: GB)
  Receive Date: 20190808
  Receipt Date: 20190808
  Transmission Date: 20191004
  Serious: Yes (Life-Threatening)
  Sender: FDA-Public Use
  Company Number: GB-TEVA-2019-GB-1089690

PATIENT
  Age: 26 Year
  Sex: Female
  Weight: 67 kg

DRUGS (5)
  1. NAPROXEN. [Concomitant]
     Active Substance: NAPROXEN
  2. VENLAFAXINE [Concomitant]
     Active Substance: VENLAFAXINE HYDROCHLORIDE
  3. GABAPENTIN. [Suspect]
     Active Substance: GABAPENTIN
     Indication: RADICULITIS BRACHIAL
     Route: 048
     Dates: start: 20190607, end: 20190623
  4. AMITRIPTYLINE [Concomitant]
     Active Substance: AMITRIPTYLINE
  5. PARAMOL [Concomitant]

REACTIONS (10)
  - Delusion [Unknown]
  - Derealisation [Unknown]
  - Night sweats [Recovered/Resolved]
  - Visual impairment [Recovered/Resolved]
  - Euphoric mood [Unknown]
  - Influenza like illness [Recovered/Resolved]
  - Psychotic symptom [Recovered/Resolved]
  - Dissociation [Recovered/Resolved]
  - Suicidal ideation [Recovered/Resolved]
  - Disturbance in attention [Recovered/Resolved]

NARRATIVE: CASE EVENT DATE: 20190609
